FAERS Safety Report 6738770-X (Version None)
Quarter: 2010Q2

REPORT INFORMATION
  Report Type: 
  Country: None (occurrence: None)
  Receive Date: 20100524
  Receipt Date: 20100423
  Transmission Date: 20101027
  Serious: Yes (Death, Other)
  Sender: FDA-Public Use
  Company Number: US-BAXTER-2009BH019532

PATIENT
  Age: 60 Year
  Sex: Male
  Weight: 83 kg

DRUGS (25)
  1. HEPARIN SODIUM INJECTION [Suspect]
     Indication: DRUG USE FOR UNKNOWN INDICATION
     Route: 058
     Dates: start: 20071101, end: 20071110
  2. HEPARIN SODIUM INJECTION [Suspect]
     Route: 058
     Dates: start: 20071111, end: 20071121
  3. HEPARIN SODIUM INJECTION [Suspect]
     Route: 065
     Dates: start: 20071122, end: 20071101
  4. AVANDIA [Concomitant]
     Indication: DRUG USE FOR UNKNOWN INDICATION
     Route: 065
  5. PROTONIX [Concomitant]
     Indication: DRUG USE FOR UNKNOWN INDICATION
     Route: 065
  6. FOLIC ACID [Concomitant]
     Indication: DRUG USE FOR UNKNOWN INDICATION
     Route: 065
  7. VITAMIN E [Concomitant]
     Indication: DRUG USE FOR UNKNOWN INDICATION
     Route: 065
  8. VITAMIN C [Concomitant]
     Indication: DRUG USE FOR UNKNOWN INDICATION
     Route: 065
  9. NICOTINE [Concomitant]
     Indication: DRUG USE FOR UNKNOWN INDICATION
     Route: 065
  10. LANTUS [Concomitant]
     Indication: DRUG USE FOR UNKNOWN INDICATION
     Route: 058
  11. HYDROCODONE [Concomitant]
     Indication: DRUG USE FOR UNKNOWN INDICATION
     Route: 065
  12. XANAX [Concomitant]
     Indication: DRUG USE FOR UNKNOWN INDICATION
     Route: 065
  13. BISACODYL [Concomitant]
     Indication: DRUG USE FOR UNKNOWN INDICATION
     Route: 065
  14. DRONABINOL [Concomitant]
     Indication: DRUG USE FOR UNKNOWN INDICATION
     Route: 065
  15. ENOXAPARIN SODIUM [Concomitant]
     Indication: DRUG USE FOR UNKNOWN INDICATION
     Route: 058
  16. FENTANYL [Concomitant]
     Indication: DRUG USE FOR UNKNOWN INDICATION
     Route: 003
  17. MAGNESIUM CITRATE [Concomitant]
     Indication: DRUG USE FOR UNKNOWN INDICATION
     Route: 065
  18. METOCLOPRAMIDE [Concomitant]
     Indication: DRUG USE FOR UNKNOWN INDICATION
     Route: 042
  19. POLYETHYLENE GLYCOL 3350 [Concomitant]
     Indication: DRUG USE FOR UNKNOWN INDICATION
     Route: 065
  20. HYDROMORPHONE HYDROCHLORIDE [Concomitant]
     Indication: DRUG USE FOR UNKNOWN INDICATION
     Route: 065
  21. LORAZEPAM [Concomitant]
     Indication: DRUG USE FOR UNKNOWN INDICATION
     Route: 042
  22. ONDANSETRON [Concomitant]
     Indication: DRUG USE FOR UNKNOWN INDICATION
     Route: 042
  23. TPN ELECTROLYTES IN PLASTIC CONTAINER [Concomitant]
     Indication: DRUG USE FOR UNKNOWN INDICATION
     Route: 042
  24. PHENERGAN [Concomitant]
     Indication: NAUSEA
     Route: 048
  25. AMBIEN [Concomitant]
     Indication: DRUG USE FOR UNKNOWN INDICATION
     Route: 048

REACTIONS (6)
  - BLOOD PRESSURE DECREASED [None]
  - CARDIO-RESPIRATORY ARREST [None]
  - LUNG INFECTION PSEUDOMONAL [None]
  - RESPIRATORY ARREST [None]
  - STAPHYLOCOCCUS TEST POSITIVE [None]
  - TRANSITIONAL CELL CARCINOMA [None]
